FAERS Safety Report 23900355 (Version 1)
Quarter: 2024Q2

REPORT INFORMATION
  Report Type: Spontaneous
  Country: US (occurrence: None)
  Receive Date: 20240526
  Receipt Date: 20240526
  Transmission Date: 20240716
  Serious: No
  Sender: FDA-Public Use
  Company Number: US-ROCHE-3352230

PATIENT
  Sex: Female

DRUGS (1)
  1. OCREVUS [Suspect]
     Active Substance: OCRELIZUMAB
     Indication: Multiple sclerosis
     Route: 042
     Dates: start: 20230510

REACTIONS (6)
  - Feeling hot [Unknown]
  - Nausea [Unknown]
  - Fatigue [Unknown]
  - Oropharyngeal pain [Unknown]
  - Headache [Unknown]
  - Autoscopy [Unknown]

NARRATIVE: CASE EVENT DATE: 20230510
